FAERS Safety Report 10929681 (Version 2)
Quarter: 2015Q2

REPORT INFORMATION
  Report Type: Spontaneous
  Country: US (occurrence: US)
  Receive Date: 20150319
  Receipt Date: 20150408
  Transmission Date: 20150821
  Serious: Yes (Other)
  Sender: FDA-Public Use
  Company Number: US-PFIZER INC-2015092230

PATIENT
  Age: 67 Year
  Sex: Female
  Weight: 162 kg

DRUGS (8)
  1. TOPAMAX [Concomitant]
     Active Substance: TOPIRAMATE
  2. CYMBALTA [Concomitant]
     Active Substance: DULOXETINE HYDROCHLORIDE
  3. TYLENOL [Concomitant]
     Active Substance: ACETAMINOPHEN
  4. PROGESTERONE. [Concomitant]
     Active Substance: PROGESTERONE
     Dosage: UNK
  5. LYRICA [Suspect]
     Active Substance: PREGABALIN
     Indication: DIABETIC NEUROPATHY
     Dosage: 30 MG, UNK
     Route: 048
  6. LYRICA [Suspect]
     Active Substance: PREGABALIN
     Dosage: 100 MG, 3X/DAY
     Route: 048
  7. BABY ASPIRIN [Concomitant]
     Active Substance: ASPIRIN
  8. BACITRACIN. [Concomitant]
     Active Substance: BACITRACIN

REACTIONS (9)
  - Cellulitis [Not Recovered/Not Resolved]
  - Glycosylated haemoglobin increased [Unknown]
  - Subcutaneous abscess [Recovering/Resolving]
  - Diabetic nephropathy [Unknown]
  - Binge eating [Unknown]
  - Malaise [Not Recovered/Not Resolved]
  - Stress [Unknown]
  - Drug effect incomplete [Not Recovered/Not Resolved]
  - Protein urine present [Unknown]

NARRATIVE: CASE EVENT DATE: 20150220
